FAERS Safety Report 20119923 (Version 2)
Quarter: 2022Q1

REPORT INFORMATION
  Report Type: Report from Study
  Country: US (occurrence: US)
  Receive Date: 20211126
  Receipt Date: 20220222
  Transmission Date: 20220424
  Serious: Yes (Hospitalization)
  Sender: FDA-Public Use
  Company Number: US-GILEAD-2021-0529397

PATIENT
  Age: 36 Year
  Sex: Female
  Weight: 64 kg

DRUGS (9)
  1. SACITUZUMAB GOVITECAN [Suspect]
     Active Substance: SACITUZUMAB GOVITECAN
     Indication: Breast cancer metastatic
     Dosage: 10 MG/KG (650 MG) DAYS 1 AND 8 OF 21-DAYS CYCLE
     Route: 042
     Dates: start: 20201026, end: 20201026
  2. SACITUZUMAB GOVITECAN [Suspect]
     Active Substance: SACITUZUMAB GOVITECAN
     Dosage: 10 MG/KG (650 MG) DAYS 1 AND 8 OF 21-DAYS CYCLE
     Route: 042
     Dates: start: 20201102, end: 20201102
  3. SACITUZUMAB GOVITECAN [Suspect]
     Active Substance: SACITUZUMAB GOVITECAN
     Dosage: 7.5 MG/KG, DAYS 1 AND 8 OF 21-DAYS CYCLE
     Route: 042
     Dates: start: 20201208, end: 20201208
  4. LISINOPRIL [Concomitant]
     Active Substance: LISINOPRIL
     Indication: Hypertension
     Dosage: 2.5 MG, QD (BEDTIME)
     Route: 048
     Dates: start: 20200924
  5. ONDANSETRON [Concomitant]
     Active Substance: ONDANSETRON
     Indication: Nausea
     Dosage: 4 MG, TID, PRN
     Route: 048
     Dates: start: 20201027
  6. METOCLOPRAMIDE [Concomitant]
     Active Substance: METOCLOPRAMIDE
     Indication: Nausea
     Dosage: 10 MG, TID (Q8H), PRN
     Route: 048
     Dates: start: 20201029
  7. METOCLOPRAMIDE [Concomitant]
     Active Substance: METOCLOPRAMIDE
     Dosage: 10 MG, TID (Q8H), PRN
     Route: 048
     Dates: start: 20201102
  8. HYDROXYZINE HYDROCHLORIDE [Concomitant]
     Active Substance: HYDROXYZINE HYDROCHLORIDE
     Indication: Nausea
     Dosage: 25 MG, TID (Q8H), X 7 DAYS
     Route: 048
     Dates: start: 20201029, end: 20201104
  9. LIDOCAINE PRILOCAINE BIOGARAN [Concomitant]
     Indication: Product used for unknown indication
     Dosage: 2.5%-2.5% TO PORT SITE 30-45 PRIOR TO ASSESSING, PRN
     Route: 061
     Dates: start: 20201105

REACTIONS (4)
  - Neutropenic colitis [Recovered/Resolved]
  - Neutropenia [Recovered/Resolved]
  - Hypotension [Recovered/Resolved]
  - Vomiting [Recovered/Resolved]

NARRATIVE: CASE EVENT DATE: 20201109
